FAERS Safety Report 15051908 (Version 1)
Quarter: 2018Q2

REPORT INFORMATION
  Report Type: Spontaneous
  Country: DE (occurrence: DE)
  Receive Date: 20180622
  Receipt Date: 20180622
  Transmission Date: 20180711
  Serious: Yes (Death, Hospitalization, Other)
  Sender: FDA-Public Use
  Company Number: DE-JNJFOC-20180625306

PATIENT
  Age: 78 Year
  Sex: Female
  Weight: 69 kg

DRUGS (7)
  1. METOHEXAL [Concomitant]
     Active Substance: METOPROLOL SUCCINATE
     Indication: ARRHYTHMIA
     Route: 048
     Dates: start: 201404
  2. XARELTO [Suspect]
     Active Substance: RIVAROXABAN
     Indication: ATRIAL FIBRILLATION
     Route: 048
     Dates: start: 20170102, end: 20170127
  3. LERCANIDIPINE [Concomitant]
     Active Substance: LERCANIDIPINE
     Indication: HYPERTENSION
     Route: 048
     Dates: start: 201609
  4. L THYROXINE [Concomitant]
     Active Substance: LEVOTHYROXINE SODIUM
     Indication: HYPOTHYROIDISM
     Route: 048
     Dates: start: 201212
  5. SANDIMMUN [Interacting]
     Active Substance: CYCLOSPORINE
     Indication: MYELODYSPLASTIC SYNDROME
     Route: 048
     Dates: start: 201009
  6. ENALAPRIL MALEATE W/HYDROCHLOROTHIAZIDE [Concomitant]
     Active Substance: ENALAPRIL MALEATE\HYDROCHLOROTHIAZIDE
     Indication: HYPERTENSION
     Route: 048
     Dates: start: 200904
  7. TORASEMID [Concomitant]
     Active Substance: TORSEMIDE
     Indication: CARDIAC FAILURE
     Route: 048
     Dates: end: 2017

REACTIONS (9)
  - Leukopenia [Fatal]
  - Blood urea increased [Fatal]
  - Pyrexia [Fatal]
  - General physical health deterioration [Fatal]
  - Thrombocytopenia [Fatal]
  - Blood creatinine increased [Fatal]
  - Dyspnoea [Fatal]
  - Death [Fatal]
  - Drug interaction [Fatal]

NARRATIVE: CASE EVENT DATE: 20170112
